FAERS Safety Report 9374319 (Version 1)
Quarter: 2013Q2

REPORT INFORMATION
  Report Type: Spontaneous
  Country: US (occurrence: None)
  Receive Date: 20130627
  Receipt Date: 20130627
  Transmission Date: 20140414
  Serious: No
  Sender: FDA-Public Use
  Company Number: None

PATIENT
  Age: 47 Year
  Sex: Male
  Weight: 92.53 kg

DRUGS (9)
  1. HUMIRA [Suspect]
     Indication: PSORIASIS
     Dosage: HUMIRA 40MG Q OTHER WEEK SC
     Route: 058
     Dates: start: 20100513, end: 20121130
  2. VECTICAL [Concomitant]
  3. CLOBETASOL/ TRIAMCINOLONE [Concomitant]
  4. LISINOPRIL [Concomitant]
  5. CLOBETASOL [Concomitant]
  6. GLIPIZIDE [Concomitant]
  7. CALCITRIOL [Concomitant]
  8. ATENOLOL [Concomitant]
  9. TRIAMCINOLONE ACETONIDE [Concomitant]

REACTIONS (5)
  - Blood creatine phosphokinase increased [None]
  - Rash pruritic [None]
  - Discomfort [None]
  - Skin exfoliation [None]
  - Erythema [None]
